FAERS Safety Report 11806474 (Version 3)
Quarter: 2015Q4

REPORT INFORMATION
  Report Type: Spontaneous
  Country: JP (occurrence: JP)
  Receive Date: 20151207
  Receipt Date: 20151224
  Transmission Date: 20160305
  Serious: Yes (Death, Other)
  Sender: FDA-Public Use
  Company Number: JP-PFIZER INC-2015388353

PATIENT
  Age: 87 Year
  Sex: Female
  Weight: 29 kg

DRUGS (15)
  1. FUROSEMIDE. [Suspect]
     Active Substance: FUROSEMIDE
     Indication: DIURETIC THERAPY
     Dosage: 20 MG, DAILY
     Route: 042
     Dates: start: 20151014, end: 20151114
  2. FESIN /00023550/ [Suspect]
     Active Substance: IRON SUCROSE
     Indication: ANAEMIA
     Dosage: 80 MG, DAILY
     Route: 041
     Dates: start: 20151025, end: 20151102
  3. PLAVIX [Concomitant]
     Active Substance: CLOPIDOGREL BISULFATE
     Dosage: UNK
     Route: 048
     Dates: end: 20151015
  4. LANSOPRAZOLE. [Concomitant]
     Active Substance: LANSOPRAZOLE
     Dosage: UNK
     Route: 048
     Dates: end: 20151015
  5. MIYA-BM [Concomitant]
     Active Substance: CLOSTRIDIUM BUTYRICUM SPORES STRAIN M-55
     Dosage: UNK
     Route: 048
     Dates: end: 20151015
  6. CERCINE [Concomitant]
     Active Substance: DIAZEPAM
     Dosage: UNK
     Dates: end: 20151015
  7. FERROUS CITRATE SODIUM [Concomitant]
     Dosage: UNK
     Route: 048
     Dates: end: 20151015
  8. OMEPRAZOLE SODIUM [Suspect]
     Active Substance: OMEPRAZOLE SODIUM
     Indication: STRESS ULCER
     Dosage: 40 MG, DAILY
     Route: 042
     Dates: start: 20151023, end: 20151114
  9. SULBACILLIN [Concomitant]
     Active Substance: AMPICILLIN SODIUM\SULBACTAM SODIUM
     Dosage: UNK
     Route: 042
     Dates: start: 20151019, end: 20151022
  10. DEPAS [Concomitant]
     Active Substance: ETIZOLAM
     Dosage: UNK
     Route: 048
     Dates: end: 20151015
  11. BFLUID [Concomitant]
     Active Substance: AMINO ACIDS\DEXTROSE\ELECTROLYTES NOS\VITAMINS
     Dosage: UNK
     Route: 041
     Dates: start: 20151006, end: 20151114
  12. ZOSYN [Suspect]
     Active Substance: PIPERACILLIN SODIUM\TAZOBACTAM SODIUM
     Dosage: 9 G, DAILY
     Route: 041
     Dates: start: 20151023, end: 20151028
  13. UNIPHYLLA [Concomitant]
     Active Substance: THEOPHYLLINE ANHYDROUS
     Dosage: UNK
     Route: 048
     Dates: end: 20151015
  14. ZOSYN [Suspect]
     Active Substance: PIPERACILLIN SODIUM\TAZOBACTAM SODIUM
     Indication: PNEUMONIA ASPIRATION
     Dosage: 4.5 G, 2X/DAY
     Route: 041
     Dates: start: 20151006, end: 20151019
  15. SINGULAIR [Concomitant]
     Active Substance: MONTELUKAST SODIUM
     Dosage: UNK
     Route: 048
     Dates: end: 20151015

REACTIONS (3)
  - Platelet count decreased [Fatal]
  - Infection [Fatal]
  - Pancytopenia [Fatal]

NARRATIVE: CASE EVENT DATE: 20151021
